FAERS Safety Report 25456428 (Version 1)
Quarter: 2025Q2

REPORT INFORMATION
  Report Type: Spontaneous
  Country: CA (occurrence: CA)
  Receive Date: 20250619
  Receipt Date: 20250619
  Transmission Date: 20250716
  Serious: Yes (Other)
  Sender: ANI
  Company Number: CA-ANIPHARMA-2021-CA-000336

PATIENT
  Age: 55 Year
  Sex: Female

DRUGS (2)
  1. CANDESARTAN CILEXETIL [Suspect]
     Active Substance: CANDESARTAN CILEXETIL
     Indication: Product used for unknown indication
     Route: 048
  2. OMALIZUMAB [Suspect]
     Active Substance: OMALIZUMAB
     Route: 058

REACTIONS (32)
  - Cough [Unknown]
  - Erythema [Unknown]
  - Fatigue [Unknown]
  - Headache [Unknown]
  - Lethargy [Unknown]
  - Nasopharyngitis [Unknown]
  - Nausea [Unknown]
  - Oral herpes [Unknown]
  - Paraesthesia [Unknown]
  - Peripheral swelling [Unknown]
  - Pneumonia [Unknown]
  - Dizziness [Unknown]
  - Productive cough [Unknown]
  - Psoriasis [Unknown]
  - Sluggishness [Unknown]
  - Somnolence [Unknown]
  - Stress [Unknown]
  - Tenderness [Unknown]
  - Vertigo [Unknown]
  - Vomiting projectile [Unknown]
  - Weight decreased [Unknown]
  - Incorrect dose administered [Unknown]
  - Pruritus [Unknown]
  - Product availability issue [Unknown]
  - Urticaria [Unknown]
  - Pruritus [Unknown]
  - Urticaria [Unknown]
  - Asthma [Unknown]
  - Back injury [Unknown]
  - Blood pressure increased [Unknown]
  - Cyst [Unknown]
  - Discomfort [Unknown]

NARRATIVE: CASE EVENT DATE: 20150529
